FAERS Safety Report 8053143-8 (Version None)
Quarter: 2012Q1

REPORT INFORMATION
  Report Type: 
  Country: None (occurrence: None)
  Receive Date: 20120118
  Receipt Date: 20120117
  Transmission Date: 20120608
  Serious: Yes (Hospitalization)
  Sender: FDA-Public Use
  Company Number: IT-SANOFI-AVENTIS-2012SA003272

PATIENT
  Age: 67 Year
  Sex: Female

DRUGS (8)
  1. CLOPIDOGREL BISULFATE [Suspect]
     Route: 048
     Dates: start: 20090101, end: 20111202
  2. BISOPROLOL FUMARATE [Concomitant]
     Route: 048
  3. GLYCERYL TRINITRATE [Concomitant]
     Route: 062
  4. LASIX [Suspect]
     Indication: OEDEMA
     Route: 048
     Dates: start: 20090101, end: 20111201
  5. ALL OTHER THERAPEUTIC PRODUCTS [Suspect]
     Indication: RHEUMATOID ARTHRITIS
     Route: 048
     Dates: start: 20111127, end: 20111202
  6. DELORAZEPAM [Suspect]
     Indication: ANXIETY
     Route: 048
     Dates: start: 20100101, end: 20111202
  7. DEFLAZACORT [Concomitant]
     Indication: RHEUMATOID ARTHRITIS
     Route: 048
  8. MISOPROSTOL [Concomitant]

REACTIONS (2)
  - HALLUCINATION, VISUAL [None]
  - CONFUSIONAL STATE [None]
